FAERS Safety Report 17740691 (Version 7)
Quarter: 2024Q2

REPORT INFORMATION
  Report Type: Spontaneous
  Country: PT (occurrence: PT)
  Receive Date: 20200504
  Receipt Date: 20240529
  Transmission Date: 20240716
  Serious: Yes (Death, Life-Threatening, Other)
  Sender: FDA-Public Use
  Company Number: PT-PFIZER INC-2020136328

PATIENT
  Age: 57 Year
  Sex: Female

DRUGS (11)
  1. TIANEPTINE [Interacting]
     Active Substance: TIANEPTINE
     Indication: Depression
     Dosage: UNK
     Route: 065
  2. TIANEPTINE [Interacting]
     Active Substance: TIANEPTINE
     Indication: Depressive symptom
  3. DIAZEPAM [Interacting]
     Active Substance: DIAZEPAM
     Indication: Depression
     Dosage: UNK
     Route: 065
  4. ESTAZOLAM [Interacting]
     Active Substance: ESTAZOLAM
     Indication: Depression
     Dosage: UNK
     Route: 065
  5. PERINDOPRIL [Suspect]
     Active Substance: PERINDOPRIL
     Indication: Product used for unknown indication
     Dosage: 5 MILLIGRAM, QD (5 MILLIGRAM, DAILY)
     Route: 065
     Dates: start: 200903
  6. TRASTUZUMAB [Interacting]
     Active Substance: TRASTUZUMAB
     Indication: Invasive ductal breast carcinoma
     Dosage: UNK (LAST INFUSION ON 9 MARCH)
     Route: 065
     Dates: start: 200810, end: 20090309
  7. TRASTUZUMAB [Interacting]
     Active Substance: TRASTUZUMAB
     Indication: Breast cancer
  8. TRASTUZUMAB [Interacting]
     Active Substance: TRASTUZUMAB
     Indication: Adjuvant therapy
  9. ATENOLOL [Concomitant]
     Active Substance: ATENOLOL
     Indication: Supraventricular extrasystoles
     Dosage: UNK
     Route: 065
     Dates: start: 200709, end: 20090316
  10. TAMOXIFEN [Concomitant]
     Active Substance: TAMOXIFEN
     Indication: HER2 positive breast cancer
     Dosage: UNK
     Route: 065
     Dates: start: 200809
  11. TAMOXIFEN [Concomitant]
     Active Substance: TAMOXIFEN
     Indication: Invasive ductal breast carcinoma

REACTIONS (4)
  - Arrhythmia [Fatal]
  - Sudden cardiac death [Fatal]
  - Drug interaction [Fatal]
  - Left ventricular dysfunction [Fatal]

NARRATIVE: CASE EVENT DATE: 20090301
